FAERS Safety Report 8138015-2 (Version None)
Quarter: 2012Q1

REPORT INFORMATION
  Report Type: 
  Country: None (occurrence: None)
  Receive Date: 20120215
  Receipt Date: 20120210
  Transmission Date: 20120608
  Serious: Yes (Hospitalization, Other)
  Sender: FDA-Public Use
  Company Number: BR-PFIZER INC-2011280388

PATIENT
  Age: 54 Year
  Sex: Female
  Weight: 80 kg

DRUGS (6)
  1. VARENICLINE TARTRATE [Suspect]
     Indication: SMOKING CESSATION THERAPY
     Dosage: UNK
     Route: 048
     Dates: start: 20111107, end: 20111101
  2. A.A.S. INFANTIL [Concomitant]
     Indication: CARDIAC DISORDER
     Dosage: UNK, 2 TABLETS AT MIDDAY
     Dates: start: 20110101
  3. LOSARTAN POTASSIUM [Concomitant]
     Indication: BLOOD PRESSURE ABNORMAL
     Dosage: 50MG ONE TABLET, EVERY 12 HOURS
     Dates: start: 20110101
  4. ATORVASTATIN CALCIUM [Concomitant]
     Indication: BLOOD CHOLESTEROL INCREASED
     Dosage: UNK, 1 TABLET AT NIGHT
     Dates: start: 20110101
  5. VARENICLINE TARTRATE [Suspect]
     Dosage: 0.5 MG, 2X/DAY
     Route: 048
     Dates: start: 20111101
  6. A.A.S. INFANTIL [Concomitant]
     Indication: CARDIOVASCULAR EVENT PROPHYLAXIS

REACTIONS (11)
  - AGEUSIA [None]
  - URTICARIA [None]
  - DEPRESSION [None]
  - FORMICATION [None]
  - NASAL DRYNESS [None]
  - ANXIETY [None]
  - NODULE [None]
  - PRURITUS [None]
  - CRYING [None]
  - DRY EYE [None]
  - INSOMNIA [None]
